FAERS Safety Report 18668350 (Version 1)
Quarter: 2020Q4

REPORT INFORMATION
  Report Type: Spontaneous
  Country: US (occurrence: US)
  Receive Date: 20201225
  Receipt Date: 20201225
  Transmission Date: 20210114
  Serious: Yes (Disabling)
  Sender: FDA-Public Use
  Company Number: None

PATIENT
  Age: 29 Year
  Sex: Male
  Weight: 112.5 kg

DRUGS (6)
  1. MAGNESIUM I-THREONATE [Concomitant]
  2. GINGKO BILOBA [Concomitant]
     Active Substance: GINKGO
  3. TURMERIC [Concomitant]
     Active Substance: HERBALS\TURMERIC
  4. CIPROFLOXACIN. [Suspect]
     Active Substance: CIPROFLOXACIN
     Indication: EPIDIDYMITIS
     Dosage: ?          QUANTITY:1 CAPSULE(S);?
     Route: 048
     Dates: start: 20201003, end: 20201008
  5. VITAMIN D [Concomitant]
     Active Substance: VITAMIN D NOS
  6. FISH OIL [Concomitant]
     Active Substance: FISH OIL

REACTIONS (21)
  - Panic attack [None]
  - Arrhythmia [None]
  - Tinnitus [None]
  - Dry eye [None]
  - Anxiety [None]
  - Ear pain [None]
  - Hyperacusis [None]
  - Vomiting [None]
  - Dizziness postural [None]
  - Quality of life decreased [None]
  - Neuropathy peripheral [None]
  - Vitreous floaters [None]
  - Myoclonus [None]
  - Eye pain [None]
  - Tremor [None]
  - Heart rate irregular [None]
  - Muscle twitching [None]
  - Nausea [None]
  - Myalgia [None]
  - Autophony [None]
  - Feeling abnormal [None]

NARRATIVE: CASE EVENT DATE: 20201003
